FAERS Safety Report 7380979-9 (Version None)
Quarter: 2011Q1

REPORT INFORMATION
  Report Type: 
  Country: None (occurrence: None)
  Receive Date: 20110329
  Receipt Date: 20110325
  Transmission Date: 20110831
  Serious: Yes (Life-Threatening, Hospitalization, Disabling, Other)
  Sender: FDA-Public Use
  Company Number: US-ASTRAZENECA-2009SE31409

PATIENT
  Age: 20306 Day
  Sex: Female
  Weight: 101.6 kg

DRUGS (9)
  1. BENICAR [Concomitant]
     Indication: DIABETES MELLITUS
  2. LIPITOR [Concomitant]
     Dates: start: 20070201, end: 20090113
  3. CRESTOR [Suspect]
     Indication: LIPIDS
     Route: 048
     Dates: start: 20090713, end: 20090904
  4. CALTRATE [Concomitant]
  5. METPORMINER [Concomitant]
     Indication: DIABETES MELLITUS
     Dosage: 2 GM DAILY
  6. MULTIVIT [Concomitant]
  7. ASPIRIN [Concomitant]
  8. VIT D [Concomitant]
  9. AMARYL [Concomitant]
     Indication: DIABETES MELLITUS

REACTIONS (5)
  - MYOPATHY [None]
  - BLOOD CREATINE PHOSPHOKINASE [None]
  - FATIGUE [None]
  - QUADRIPLEGIA [None]
  - RHABDOMYOLYSIS [None]
